FAERS Safety Report 6413086-X (Version None)
Quarter: 2009Q4

REPORT INFORMATION
  Report Type: 
  Country: None (occurrence: None)
  Receive Date: 20091026
  Receipt Date: 20091020
  Transmission Date: 20100525
  Serious: Yes (Hospitalization)
  Sender: FDA-Public Use
  Company Number: JP-ALLERGAN-0914660US

PATIENT
  Age: 11 Year
  Sex: Male
  Weight: 18 kg

DRUGS (3)
  1. BOTOX [Suspect]
     Indication: TORTICOLLIS
     Dosage: 50 UNITS, SINGLE
     Route: 030
     Dates: start: 20051107, end: 20051107
  2. BOTOX [Suspect]
     Dosage: 30 UNITS, SINGLE
     Route: 030
     Dates: start: 20060508, end: 20060508
  3. DEPAKENE [Concomitant]
     Indication: CONVULSION
     Dosage: 1.2 G, QD
     Route: 050
     Dates: start: 19970201

REACTIONS (2)
  - CONVULSION [None]
  - PNEUMONIA [None]
